FAERS Safety Report 18821624 (Version 1)
Quarter: 2021Q1

REPORT INFORMATION
  Report Type: Spontaneous
  Country: US (occurrence: US)
  Receive Date: 20210202
  Receipt Date: 20210202
  Transmission Date: 20210419
  Serious: Yes (Other)
  Sender: FDA-Public Use
  Company Number: US-PACIRA-2021000018

PATIENT
  Age: 72 Year
  Sex: Male

DRUGS (14)
  1. VERSED [Concomitant]
     Active Substance: MIDAZOLAM HYDROCHLORIDE
     Indication: PREOPERATIVE CARE
     Dosage: 1 MG BEFORE SURGERY
     Route: 065
  2. GABAPENTIN. [Concomitant]
     Active Substance: GABAPENTIN
     Indication: POSTOPERATIVE CARE
     Dosage: BID FOR 2 WEEKS
     Route: 065
  3. ZOFRAN 4 [Concomitant]
     Indication: POSTOPERATIVE CARE
     Route: 065
  4. EXPAREL [Suspect]
     Active Substance: BUPIVACAINE
     Indication: POSTOPERATIVE ANALGESIA
     Dosage: 2017??266 MG, 20CC
     Route: 065
  5. TYLENOL 1000 [Concomitant]
     Indication: POSTOPERATIVE CARE
     Dosage: 500?1,000 MG/5 MG Q6H AS NEEDED OR BASED ON SURGEON PREFERENCE
     Route: 065
  6. TRAMADOL 50 [Concomitant]
     Active Substance: TRAMADOL
     Indication: POSTOPERATIVE CARE
     Route: 065
  7. MELOXICAM 7.5 [Concomitant]
     Active Substance: MELOXICAM
     Indication: POSTOPERATIVE CARE
     Route: 065
  8. ENTERIC?COATED ASPIRIN 325 MG [Concomitant]
     Indication: THROMBOSIS PROPHYLAXIS
     Dosage: BID
     Route: 065
  9. VANCOMYCIN [Concomitant]
     Active Substance: VANCOMYCIN
     Indication: PREOPERATIVE CARE
     Dosage: 1 G BEFORE SURGERY
     Route: 042
  10. FENTANYL. [Concomitant]
     Active Substance: FENTANYL
     Indication: PREOPERATIVE CARE
     Dosage: 50 MCG BEFORE SURGERY
     Route: 065
  11. OXYCODONE [Concomitant]
     Active Substance: OXYCODONE
     Indication: POSTOPERATIVE CARE
     Dosage: 5?10 MG Q6H OR AS NEEDED
     Route: 065
  12. CLINDAMYCIN. [Concomitant]
     Active Substance: CLINDAMYCIN
     Indication: POSTOPERATIVE CARE
     Dosage: 300 MG
     Route: 065
  13. COLACE 100 [Concomitant]
     Indication: POSTOPERATIVE CARE
     Route: 065
  14. ANCEF [Concomitant]
     Active Substance: CEFAZOLIN SODIUM
     Indication: PREOPERATIVE CARE
     Dosage: 1 G BEFORE SURGERY
     Route: 042

REACTIONS (1)
  - Arthrofibrosis [Unknown]
